FAERS Safety Report 9669809 (Version 2)
Quarter: 2014Q2

REPORT INFORMATION
  Report Type: Report from Study
  Country: DE (occurrence: TR)
  Receive Date: 20131105
  Receipt Date: 20140612
  Transmission Date: 20141212
  Serious: Yes (Death)
  Sender: FDA-Public Use
  Company Number: DE-ACTELION-A-US2013-90811

PATIENT
  Age: 12 Year
  Sex: Female

DRUGS (2)
  1. VENTAVIS [Suspect]
     Indication: ATRIAL SEPTAL DEFECT
     Dosage: 3 AMPUL., UNK
     Route: 055
     Dates: start: 20120409
  2. LASIX [Concomitant]

REACTIONS (2)
  - Atrial septal defect [Fatal]
  - Off label use [Unknown]
